FAERS Safety Report 14043206 (Version 1)
Quarter: 2017Q4

REPORT INFORMATION
  Report Type: Report from Study
  Country: US (occurrence: US)
  Receive Date: 20171004
  Receipt Date: 20171004
  Transmission Date: 20180321
  Serious: No
  Sender: FDA-Public Use
  Company Number: US-AMGEN-USASL2016140971

PATIENT
  Age: 80 Year
  Sex: Female

DRUGS (1)
  1. PROLIA [Suspect]
     Active Substance: DENOSUMAB
     Indication: PRODUCT USED FOR UNKNOWN INDICATION
     Dosage: UNK UNK, UNK
     Route: 065
     Dates: start: 201510

REACTIONS (8)
  - Fatigue [Not Recovered/Not Resolved]
  - Lip swelling [Not Recovered/Not Resolved]
  - Dermatitis [Not Recovered/Not Resolved]
  - Swelling face [Not Recovered/Not Resolved]
  - Blister [Recovered/Resolved]
  - Eczema [Not Recovered/Not Resolved]
  - Micturition urgency [Not Recovered/Not Resolved]
  - Headache [Not Recovered/Not Resolved]

NARRATIVE: CASE EVENT DATE: 201607
